FAERS Safety Report 24872404 (Version 1)
Quarter: 2025Q1

REPORT INFORMATION
  Report Type: Spontaneous
  Country: US (occurrence: US)
  Receive Date: 20250122
  Receipt Date: 20250122
  Transmission Date: 20250409
  Serious: No
  Sender: Haleon PLC
  Company Number: US-HALEON-2221988

PATIENT

DRUGS (3)
  1. SENSODYNE EXTRA WHITENING [Suspect]
     Active Substance: POTASSIUM NITRATE\SODIUM FLUORIDE
     Indication: Dental disorder prophylaxis
  2. SENSODYNE COMPLETE PROTECTION EXTRA FRESH [Suspect]
     Active Substance: STANNOUS FLUORIDE
     Indication: Dental disorder prophylaxis
  3. SENSODYNE COMPLETE PROTECTION EXTRA FRESH [Suspect]
     Active Substance: STANNOUS FLUORIDE

REACTIONS (1)
  - Oral mucosal exfoliation [Recovered/Resolved]

NARRATIVE: CASE EVENT DATE: 20250110
